FAERS Safety Report 10223578 (Version 1)
Quarter: 2014Q2

REPORT INFORMATION
  Report Type: Spontaneous
  Country: AU (occurrence: AU)
  Receive Date: 20140609
  Receipt Date: 20140609
  Transmission Date: 20141212
  Serious: Yes (Hospitalization)
  Sender: FDA-Public Use
  Company Number: AU-009507513-1406AUS000401

PATIENT
  Age: 46 Year
  Sex: Male

DRUGS (2)
  1. RIBAVIRIN [Suspect]
     Dosage: UNK
     Route: 048
  2. PEGINTERFERON ALFA-2A [Suspect]
     Dosage: UNK

REACTIONS (5)
  - Scrotal ulcer [Unknown]
  - Extremity necrosis [Unknown]
  - Nausea [Unknown]
  - Skin ulcer [Unknown]
  - Vomiting [Unknown]
